FAERS Safety Report 6434952-5 (Version None)
Quarter: 2009Q4

REPORT INFORMATION
  Report Type: 
  Country: None (occurrence: None)
  Receive Date: 20091110
  Receipt Date: 20091102
  Transmission Date: 20100525
  Serious: Yes (Other)
  Sender: FDA-Public Use
  Company Number: PT-JNJFOC-20091100602

PATIENT
  Age: 6 Year
  Sex: Male

DRUGS (2)
  1. RISPERDAL [Suspect]
     Indication: DRUG USE FOR UNKNOWN INDICATION
     Route: 048
  2. RUBIFEN [Suspect]
     Indication: PSYCHOMOTOR HYPERACTIVITY
     Route: 048

REACTIONS (3)
  - HALLUCINATION [None]
  - INSOMNIA [None]
  - NIGHTMARE [None]
